FAERS Safety Report 4483455-6 (Version None)
Quarter: 2004Q4

REPORT INFORMATION
  Report Type: 
  Country: None (occurrence: None)
  Receive Date: 20041020
  Receipt Date: 20041015
  Transmission Date: 20050328
  Serious: Yes (Other)
  Sender: FDA-Public Use
  Company Number: 2004-09-1750

PATIENT
  Age: 54 Year
  Sex: Male
  Weight: 69.8539 kg

DRUGS (6)
  1. PEG-INTRON [Suspect]
     Indication: HEPATITIS C
     Dosage: 90 MCG QWK SUBCUTANEOUS
     Route: 058
     Dates: start: 20040114, end: 20040920
  2. PEG-INTRON [Suspect]
     Indication: HEPATITIS C
     Dosage: 90 MCG QWK SUBCUTANEOUS
     Route: 058
     Dates: start: 20040114
  3. PEG-INTRON [Suspect]
     Indication: HEPATITIS C
     Dosage: 90 MCG QWK SUBCUTANEOUS
     Route: 058
     Dates: start: 20041001
  4. DOXEPIN HCL [Concomitant]
  5. VASOTEC [Concomitant]
  6. VICODIN [Concomitant]

REACTIONS (5)
  - CONJUNCTIVITIS [None]
  - CORNEAL ULCER [None]
  - EYE INFECTION [None]
  - FOREIGN BODY TRAUMA [None]
  - GROWTH OF EYELASHES [None]
